FAERS Safety Report 7935349-9 (Version None)
Quarter: 2011Q4

REPORT INFORMATION
  Report Type: 
  Country: None (occurrence: None)
  Receive Date: 20111122
  Receipt Date: 20111114
  Transmission Date: 20120403
  Serious: Yes (Hospitalization)
  Sender: FDA-Public Use
  Company Number: CZ-AMGEN-CZECT2011060594

PATIENT
  Age: 39 Year
  Sex: Male

DRUGS (1)
  1. ETANERCEPT [Suspect]
     Indication: PSORIATIC ARTHROPATHY
     Dosage: 1 DF, 2X/WEEK
     Dates: start: 20060419, end: 20090918

REACTIONS (1)
  - MYASTHENIC SYNDROME [None]
